FAERS Safety Report 24344249 (Version 1)
Quarter: 2024Q3

REPORT INFORMATION
  Report Type: Report from Study
  Country: US (occurrence: US)
  Receive Date: 20240920
  Receipt Date: 20240920
  Transmission Date: 20241016
  Serious: Yes (Other)
  Sender: BAYER
  Company Number: US-BAYER-2024A066362

PATIENT
  Age: 74 Year
  Sex: Female
  Weight: 115.19 kg

DRUGS (32)
  1. ADEMPAS [Suspect]
     Active Substance: RIOCIGUAT
     Indication: Pulmonary arterial hypertension
     Dosage: UNK
     Route: 048
     Dates: start: 20240119
  2. ADEMPAS [Suspect]
     Active Substance: RIOCIGUAT
     Indication: Pulmonary arterial hypertension
     Dosage: 1 MG, TID
     Route: 048
  3. ADEMPAS [Suspect]
     Active Substance: RIOCIGUAT
     Indication: Pulmonary arterial hypertension
     Dosage: 1.5 MG
  4. MELOXICAM [Concomitant]
     Active Substance: MELOXICAM
  5. FAMOTIDINE [Concomitant]
     Active Substance: FAMOTIDINE
  6. VITAMIN D2 [Concomitant]
     Active Substance: ERGOCALCIFEROL
  7. MELATONIN [Concomitant]
     Active Substance: MELATONIN
  8. THIAMINE HYDROCHLORIDE [Concomitant]
     Active Substance: THIAMINE HYDROCHLORIDE
  9. ALBUTEROL SULFATE [Concomitant]
     Active Substance: ALBUTEROL SULFATE
  10. PEPCID [Concomitant]
     Active Substance: FAMOTIDINE
  11. ICOSAPENT ETHYL [Concomitant]
     Active Substance: ICOSAPENT ETHYL
  12. GUAIFENESIN [Concomitant]
     Active Substance: GUAIFENESIN
  13. MAGNESIUM [Concomitant]
     Active Substance: MAGNESIUM
  14. ELIQUIS [Concomitant]
     Active Substance: APIXABAN
  15. DICLOFENAC SODIUM [Concomitant]
     Active Substance: DICLOFENAC\DICLOFENAC SODIUM
  16. RYBELSUS [Concomitant]
     Active Substance: SEMAGLUTIDE
  17. LUBRICATING PLUS [Concomitant]
     Active Substance: CARBOXYMETHYLCELLULOSE SODIUM
  18. MONTELUKAST SODIUM [Concomitant]
     Active Substance: MONTELUKAST\MONTELUKAST SODIUM
  19. METFORMIN HYDROCHLORIDE [Concomitant]
     Active Substance: METFORMIN HYDROCHLORIDE
  20. LIDOCAINE [Concomitant]
     Active Substance: LIDOCAINE
  21. VASCEPA [Concomitant]
     Active Substance: ICOSAPENT ETHYL
  22. OXYGEN [Concomitant]
     Active Substance: OXYGEN
  23. CETIRIZINE HCL [Concomitant]
     Active Substance: CETIRIZINE HYDROCHLORIDE
  24. FLUCONAZOLE [Concomitant]
     Active Substance: FLUCONAZOLE
  25. OMEPRAZOLE [Concomitant]
     Active Substance: OMEPRAZOLE
  26. POLYETHYLENE GLYCOL [Concomitant]
     Active Substance: POLYETHYLENE GLYCOL
  27. PROAIR DIGIHALER [Concomitant]
     Active Substance: ALBUTEROL SULFATE
  28. CYCLOBENZAPRINE HYDROCHLORIDE [Concomitant]
     Active Substance: CYCLOBENZAPRINE HYDROCHLORIDE
  29. ROSUVASTATIN CALCIUM [Concomitant]
     Active Substance: ROSUVASTATIN CALCIUM
  30. TELMISARTAN AND HYDROCHLOROTHIAZIDE [Concomitant]
     Active Substance: HYDROCHLOROTHIAZIDE\TELMISARTAN
  31. ZYRTEC [Concomitant]
     Active Substance: CETIRIZINE HYDROCHLORIDE
  32. DIAZEPAM [Concomitant]
     Active Substance: DIAZEPAM

REACTIONS (17)
  - Loss of consciousness [Recovered/Resolved]
  - Arthralgia [Not Recovered/Not Resolved]
  - Oedema [Recovering/Resolving]
  - Dizziness [None]
  - Hypotension [Recovered/Resolved]
  - Blood pressure diastolic decreased [None]
  - Dizziness [None]
  - Memory impairment [None]
  - Arthralgia [None]
  - Pain in extremity [None]
  - Balance disorder [None]
  - Photophobia [None]
  - Vision blurred [None]
  - Visual impairment [None]
  - Sciatica [None]
  - Malaise [None]
  - Fatigue [None]

NARRATIVE: CASE EVENT DATE: 20240501
